FAERS Safety Report 4498697-3 (Version None)
Quarter: 2004Q4

REPORT INFORMATION
  Report Type: 
  Country: None (occurrence: None)
  Receive Date: 20041108
  Receipt Date: 20041025
  Transmission Date: 20050328
  Serious: Yes (Hospitalization)
  Sender: FDA-Public Use
  Company Number: 2004084601

PATIENT
  Age: 47 Year
  Sex: Female
  Weight: 80.7403 kg

DRUGS (13)
  1. ZOLOFT [Suspect]
     Indication: ILL-DEFINED DISORDER
  2. INSULIN GLARGINE (INSULIN GLARGINE) [Concomitant]
  3. INSULIN LISPRO (INSULIN LISPRO) [Concomitant]
  4. GABAPENTIN [Concomitant]
  5. HYDROCHLOROTHIAZIDE [Concomitant]
  6. THYROID TAB [Concomitant]
  7. VALSARTAN (VALSARTAN) [Concomitant]
  8. CETIRIZINE HCL [Concomitant]
  9. ALLOPURINOL [Concomitant]
  10. GLIPIZIDE [Concomitant]
  11. FLUCONAZOLE [Concomitant]
  12. METOPROLOL TARTRATE [Concomitant]
  13. ESTRADIOL [Concomitant]

REACTIONS (4)
  - LOCALISED INFECTION [None]
  - PAIN [None]
  - PATHOGEN RESISTANCE [None]
  - STAPHYLOCOCCAL INFECTION [None]
